FAERS Safety Report 10193567 (Version 1)
Quarter: 2014Q2

REPORT INFORMATION
  Report Type: Spontaneous
  Country: US (occurrence: US)
  Receive Date: 20140524
  Receipt Date: 20140524
  Transmission Date: 20141212
  Serious: No
  Sender: FDA-Public Use
  Company Number: US-SA-2014SA006160

PATIENT
  Sex: Female

DRUGS (3)
  1. LANTUS SOLOSTAR [Suspect]
     Route: 058
  2. SOLOSTAR [Concomitant]
  3. HUMALOG [Concomitant]

REACTIONS (2)
  - Visual acuity reduced [Unknown]
  - Blood glucose increased [Unknown]
